FAERS Safety Report 25865840 (Version 1)
Quarter: 2025Q3

REPORT INFORMATION
  Report Type: Report from Study
  Country: US (occurrence: US)
  Receive Date: 20250930
  Receipt Date: 20250930
  Transmission Date: 20251021
  Serious: No
  Sender: MALLINCKRODT
  Company Number: US-MALLINCKRODT-MNK202505550

PATIENT
  Age: 43 Year
  Sex: Female
  Weight: 120 kg

DRUGS (3)
  1. CORTICOTROPIN [Suspect]
     Active Substance: CORTICOTROPIN
     Indication: Ankylosing spondylitis
     Dates: start: 20250610
  2. YUFLYMA [Concomitant]
     Active Substance: ADALIMUMAB-AATY
  3. YUFLYMA [Concomitant]
     Active Substance: ADALIMUMAB-AATY
     Dates: start: 20250829

REACTIONS (5)
  - Scan abnormal [Unknown]
  - Fear of injection [Unknown]
  - Presyncope [Unknown]
  - Weight increased [Unknown]
  - Injection site pain [Unknown]

NARRATIVE: CASE EVENT DATE: 20250101
